FAERS Safety Report 14898310 (Version 2)
Quarter: 2018Q3

REPORT INFORMATION
  Report Type: Spontaneous
  Country: US (occurrence: US)
  Receive Date: 20180515
  Receipt Date: 20180723
  Transmission Date: 20181010
  Serious: No
  Sender: FDA-Public Use
  Company Number: US-SA-2018SA106912

PATIENT
  Age: 35 Year
  Sex: Male
  Weight: 49 kg

DRUGS (3)
  1. SOLOSTAR [Suspect]
     Active Substance: DEVICE
     Indication: TYPE 1 DIABETES MELLITUS
     Dosage: UNK UNK, BID
     Route: 065
     Dates: start: 20180402
  2. TOUJEO [Suspect]
     Active Substance: INSULIN GLARGINE
     Indication: TYPE 1 DIABETES MELLITUS
     Dosage: UNK UNK,BID
     Route: 051
     Dates: start: 20180402
  3. NOVOLOG [Concomitant]
     Active Substance: INSULIN ASPART
     Dosage: 18 U, QD
     Route: 065

REACTIONS (3)
  - Product use issue [Unknown]
  - Blood glucose increased [Recovering/Resolving]
  - Device issue [Unknown]

NARRATIVE: CASE EVENT DATE: 20180407
